FAERS Safety Report 14490905 (Version 4)
Quarter: 2020Q3

REPORT INFORMATION
  Report Type: Spontaneous
  Country: US (occurrence: US)
  Receive Date: 20180206
  Receipt Date: 20200811
  Transmission Date: 20201102
  Serious: No
  Sender: FDA-Public Use
  Company Number: US-PFIZER INC-2018052225

PATIENT
  Age: 73 Year
  Sex: Female
  Weight: 75 kg

DRUGS (1)
  1. IBRANCE [Suspect]
     Active Substance: PALBOCICLIB
     Indication: BREAST CANCER FEMALE
     Dosage: 125 MG, ONCE A DAY (1 CAP BY MOUTH ONCE A DAY)
     Route: 048
     Dates: start: 201707

REACTIONS (4)
  - Alopecia [Unknown]
  - Neoplasm recurrence [Unknown]
  - Gait disturbance [Unknown]
  - Condition aggravated [Unknown]
